FAERS Safety Report 9865593 (Version 1)
Quarter: 2014Q1

REPORT INFORMATION
  Report Type: Spontaneous
  Country: US (occurrence: US)
  Receive Date: 20140203
  Receipt Date: 20140203
  Transmission Date: 20141002
  Serious: No
  Sender: FDA-Public Use
  Company Number: US-ALLERGAN-1304820US

PATIENT
  Age: 64 Year
  Sex: Female

DRUGS (4)
  1. RESTASIS [Suspect]
     Indication: DRY EYE
     Dosage: 2 GTT, BID
     Route: 047
     Dates: start: 201203
  2. BAUSCH+LOMB ADVANCED EYE RELIEF [Concomitant]
     Indication: OCULAR HYPERAEMIA
     Dosage: 2 GTT, PRN
     Route: 047
  3. REFRESH CELLUVISC SOLUTION [Concomitant]
     Indication: DRY EYE
     Dosage: 2 GTT, PRN
     Route: 047
  4. PREMARIN                           /00073001/ [Concomitant]
     Indication: HORMONE REPLACEMENT THERAPY
     Dosage: UNK UNK, Q WEEK
     Route: 048

REACTIONS (3)
  - Drug ineffective [Unknown]
  - Eye pain [Unknown]
  - Eye irritation [Unknown]
